FAERS Safety Report 24823301 (Version 1)
Quarter: 2025Q1

REPORT INFORMATION
  Report Type: Spontaneous
  Country: US (occurrence: US)
  Receive Date: 20250109
  Receipt Date: 20250109
  Transmission Date: 20250408
  Serious: Yes (Death, Hospitalization, Other)
  Sender: AMGEN
  Company Number: US-AMGEN-USASP2025000418

PATIENT

DRUGS (2)
  1. EPOETIN ALFA [Suspect]
     Active Substance: ERYTHROPOIETIN
     Indication: Anaemia neonatal
     Dosage: UNK UNK, Q3WK (MORE THAN SEVEN DAYS OF THERAPY)
     Route: 058
  2. IRON [Concomitant]
     Active Substance: IRON
     Dosage: 2 MILLIGRAM/KILOGRAM, QD
     Route: 048

REACTIONS (5)
  - Pulmonary hypertensive crisis [Fatal]
  - Disseminated intravascular coagulation [Fatal]
  - Haematocrit decreased [Unknown]
  - Respiratory disorder [Unknown]
  - Reticulocyte count decreased [Unknown]
